FAERS Safety Report 4917952-3 (Version None)
Quarter: 2006Q1

REPORT INFORMATION
  Report Type: 
  Country: None (occurrence: None)
  Receive Date: 20060221
  Receipt Date: 20051004
  Transmission Date: 20060701
  Serious: Yes (Death)
  Sender: FDA-Public Use
  Company Number: US-MERCK-0510USA03628

PATIENT
  Age: 60 Year
  Sex: Male
  Weight: 105 kg

DRUGS (6)
  1. VIOXX [Suspect]
     Indication: ARTHRITIS
     Route: 048
     Dates: start: 20000404, end: 20001130
  2. BAYCOL [Concomitant]
     Route: 065
  3. CIPRO [Concomitant]
     Route: 065
  4. MEGESTROL ACETATE [Concomitant]
     Route: 065
  5. PREVACID [Concomitant]
     Route: 065
  6. TETRACYCLINE [Concomitant]
     Route: 065

REACTIONS (7)
  - ACUTE MYOCARDIAL INFARCTION [None]
  - ARRHYTHMIA [None]
  - BACTERIAL INFECTION [None]
  - GASTROOESOPHAGEAL REFLUX DISEASE [None]
  - HYPERCHOLESTEROLAEMIA [None]
  - INFECTION [None]
  - LOSS OF CONSCIOUSNESS [None]
